FAERS Safety Report 7936777-8 (Version None)
Quarter: 2011Q4

REPORT INFORMATION
  Report Type: 
  Country: None (occurrence: None)
  Receive Date: 20111123
  Receipt Date: 20111114
  Transmission Date: 20120403
  Serious: Yes (Other)
  Sender: FDA-Public Use
  Company Number: US-BAYER-2011-032261

PATIENT
  Age: 23 Year
  Sex: Female

DRUGS (9)
  1. YASMIN [Suspect]
     Indication: PREMENSTRUAL SYNDROME
  2. YASMIN [Suspect]
  3. CALTRATE + D [CALCIUM,VITAMIN D NOS] [Concomitant]
     Dosage: UNK
     Dates: end: 20081101
  4. YAZ [Suspect]
     Indication: PREMENSTRUAL SYNDROME
  5. YAZ [Suspect]
  6. IBUPROFEN (ADVIL) [Concomitant]
     Dosage: UNK
     Dates: start: 20050101
  7. YAZ [Suspect]
     Indication: ACNE
     Dosage: UNK
     Dates: start: 20060601, end: 20081101
  8. MULTI-VITAMIN [Concomitant]
     Dosage: UNK
     Dates: end: 20081101
  9. YASMIN [Suspect]
     Indication: ACNE
     Dosage: UNK
     Dates: start: 20060101, end: 20080101

REACTIONS (1)
  - DEEP VEIN THROMBOSIS [None]
